FAERS Safety Report 4267013-4 (Version None)
Quarter: 2004Q1

REPORT INFORMATION
  Report Type: 
  Country: None (occurrence: None)
  Receive Date: 20040107
  Receipt Date: 20031229
  Transmission Date: 20041129
  Serious: Yes (Other)
  Sender: FDA-Public Use
  Company Number: US-JNJFOC-20031205400

PATIENT
  Age: 25 Year
  Sex: Female
  Weight: 52.1637 kg

DRUGS (1)
  1. ORTHO TRI-CYCLEN [Suspect]
     Dosage: 1 DOSE (S), 1 IN 1 DAY, ORAL
     Route: 048
     Dates: start: 19941101

REACTIONS (2)
  - GRAND MAL CONVULSION [None]
  - HYPERTHYROIDISM [None]
